FAERS Safety Report 8075819-9 (Version None)
Quarter: 2012Q1

REPORT INFORMATION
  Report Type: 
  Country: None (occurrence: None)
  Receive Date: 20120127
  Receipt Date: 20120119
  Transmission Date: 20120608
  Serious: Yes (Other)
  Sender: FDA-Public Use
  Company Number: ZA-SANOFI-AVENTIS-2012SA000044

PATIENT
  Age: 22 Year
  Weight: 48.2 kg

DRUGS (10)
  1. RIFAMPICIN [Suspect]
     Route: 065
     Dates: start: 20111229
  2. PYRAZINAMIDE [Suspect]
     Route: 065
     Dates: start: 20111229
  3. RIFAMPICIN [Suspect]
     Indication: PULMONARY TUBERCULOSIS
     Route: 065
     Dates: start: 20111115
  4. BLINDED THERAPY [Suspect]
     Route: 065
     Dates: start: 20111229
  5. PYRAZINAMIDE [Suspect]
     Indication: PULMONARY TUBERCULOSIS
     Route: 065
     Dates: start: 20111115
  6. BLINDED THERAPY [Suspect]
     Route: 065
     Dates: start: 20111229
  7. BLINDED THERAPY [Suspect]
     Route: 065
     Dates: start: 20111115
  8. BLINDED THERAPY [Suspect]
     Route: 065
     Dates: start: 20111229
  9. BLINDED THERAPY [Suspect]
     Route: 065
     Dates: start: 20111115
  10. BLINDED THERAPY [Suspect]
     Route: 065
     Dates: start: 20111115

REACTIONS (4)
  - PANCREATITIS [None]
  - GAMMA-GLUTAMYLTRANSFERASE INCREASED [None]
  - CONSTIPATION [None]
  - JAUNDICE [None]
